FAERS Safety Report 4438863-6 (Version None)
Quarter: 2004Q3

REPORT INFORMATION
  Report Type: 
  Country: None (occurrence: None)
  Receive Date: 20040901
  Receipt Date: 20040513
  Transmission Date: 20050211
  Serious: Yes (Other)
  Sender: FDA-Public Use
  Company Number: 200411541EU

PATIENT
  Age: 65 Year
  Sex: Male

DRUGS (9)
  1. FLAGYL [Suspect]
     Indication: PAROXYSMAL NOCTURNAL HAEMOGLOBINURIA
     Route: 048
     Dates: end: 20040406
  2. MARCOUMAR [Concomitant]
  3. NOVONORM [Concomitant]
     Indication: DIABETES MELLITUS
  4. NEURONTIN [Concomitant]
  5. AMITRIPTYLINE HCL [Concomitant]
     Indication: POLYNEUROPATHY
  6. DURAGESIC [Concomitant]
     Indication: PAIN
     Route: 062
  7. CALCIMAGON [Concomitant]
  8. FOSAMAX [Concomitant]
     Route: 048
  9. PARAGOL [Concomitant]
     Indication: CONSTIPATION

REACTIONS (2)
  - DECREASED APPETITE [None]
  - WEIGHT DECREASED [None]
